FAERS Safety Report 9663613 (Version 2)
Quarter: 2013Q4

REPORT INFORMATION
  Report Type: Spontaneous
  Country: MY (occurrence: MY)
  Receive Date: 20131101
  Receipt Date: 20131109
  Transmission Date: 20140711
  Serious: No
  Sender: FDA-Public Use
  Company Number: MY-009507513-1310MYS012617

PATIENT
  Age: 34 Year
  Sex: Female

DRUGS (2)
  1. SAPHRIS [Suspect]
     Dosage: 10 MG, BID
     Route: 060
  2. SOLIAN [Concomitant]
     Dosage: UNK
     Dates: start: 2011

REACTIONS (1)
  - Rash [Unknown]
